FAERS Safety Report 9788298 (Version 3)
Quarter: 2014Q1

REPORT INFORMATION
  Report Type: Report from Study
  Country: AU (occurrence: AU)
  Receive Date: 20131230
  Receipt Date: 20140107
  Transmission Date: 20141002
  Serious: Yes (Hospitalization)
  Sender: FDA-Public Use
  Company Number: PHHY2013AU149541

PATIENT
  Sex: Male

DRUGS (4)
  1. CLOZARIL [Suspect]
     Dosage: 600 MG, UNK
     Dates: start: 20021213
  2. CLOZARIL [Suspect]
     Dosage: 300 MG, UNK
  3. CLOZARIL [Suspect]
     Dosage: UNK UKN, UNK
  4. CLOPINE [Concomitant]
     Dosage: UNK

REACTIONS (2)
  - General physical health deterioration [Unknown]
  - Drug ineffective [Unknown]
